FAERS Safety Report 10445370 (Version 2)
Quarter: 2014Q3

REPORT INFORMATION
  Report Type: Spontaneous
  Country: US (occurrence: US)
  Receive Date: 20140908
  Receipt Date: 20140908
  Transmission Date: 20150326
  Serious: No
  Sender: FDA-Public Use
  Company Number: US-BRISTOL-MYERS SQUIBB COMPANY-20712881

PATIENT
  Age: 40 Year
  Sex: Female
  Weight: 68.03 kg

DRUGS (6)
  1. ZYRTEC [Concomitant]
     Active Substance: CETIRIZINE HYDROCHLORIDE
  2. SPIRIVA [Concomitant]
     Active Substance: TIOTROPIUM BROMIDE MONOHYDRATE
  3. ABILIFY [Suspect]
     Active Substance: ARIPIPRAZOLE
     Indication: BIPOLAR DISORDER
     Dosage: TOOK 1/2 OF AN ABILIFY 5MG TABLET ON 18APR2014
     Route: 048
     Dates: start: 20140416, end: 20140417
  4. FLEXERIL [Concomitant]
     Active Substance: CYCLOBENZAPRINE HYDROCHLORIDE
  5. VITAMINS [Concomitant]
     Active Substance: VITAMINS
  6. PROAIR HFA [Concomitant]
     Active Substance: ALBUTEROL SULFATE
     Dosage: INHALER

REACTIONS (7)
  - Blepharospasm [Recovered/Resolved]
  - Drug prescribing error [Unknown]
  - Myalgia [Unknown]
  - Asthenia [Recovered/Resolved]
  - Somnolence [Unknown]
  - Abnormal dreams [Unknown]
  - Headache [Recovered/Resolved]

NARRATIVE: CASE EVENT DATE: 201404
